FAERS Safety Report 10063381 (Version 1)
Quarter: 2014Q1

REPORT INFORMATION
  Report Type: Spontaneous
  Country: IN (occurrence: None)
  Receive Date: 20140326
  Receipt Date: 20140326
  Transmission Date: 20141002
  Serious: Yes (Other)
  Sender: FDA-Public Use
  Company Number: 2013-01968

PATIENT
  Age: 24 Year
  Sex: Male

DRUGS (2)
  1. TRAMADOL [Suspect]
     Indication: FATIGUE
  2. ALPRAZOLAM (ALPRAZOLAM) [Concomitant]

REACTIONS (3)
  - Drug dependence [None]
  - Drug abuse [None]
  - Convulsion [None]
